FAERS Safety Report 13251913 (Version 1)
Quarter: 2017Q1

REPORT INFORMATION
  Report Type: Report from Study
  Country: US (occurrence: FR)
  Receive Date: 20170220
  Receipt Date: 20170220
  Transmission Date: 20170428
  Serious: Yes (Life-Threatening, Hospitalization)
  Sender: FDA-Public Use
  Company Number: US-SUNOVION-2016SUN003329

PATIENT

DRUGS (3)
  1. FORMOAIR [Concomitant]
     Dosage: UNK
     Dates: start: 20150826, end: 20151212
  2. NATRIXAM [Concomitant]
     Active Substance: AMLODIPINE\INDAPAMIDE
  3. INDACATEROL AND GLYCOPYRROLATE [Suspect]
     Active Substance: GLYCOPYRROLATE\INDACATEROL MALEATE
     Indication: CHRONIC OBSTRUCTIVE PULMONARY DISEASE
     Dosage: 1 DF, QD
     Route: 055
     Dates: start: 20150930, end: 20151212

REACTIONS (6)
  - Lung infection [Recovered/Resolved]
  - Blood urea increased [Unknown]
  - C-reactive protein increased [Unknown]
  - Atrial fibrillation [Recovering/Resolving]
  - Pulmonary microemboli [Recovered/Resolved]
  - Dyspnoea [Unknown]

NARRATIVE: CASE EVENT DATE: 20151212
